FAERS Safety Report 4636507-1 (Version None)
Quarter: 2005Q2

REPORT INFORMATION
  Report Type: 
  Country: None (occurrence: None)
  Receive Date: 20050414
  Receipt Date: 20050414
  Transmission Date: 20051028
  Serious: Yes (Death)
  Sender: FDA-Public Use
  Company Number: None

PATIENT
  Age: 79 Year
  Sex: Male
  Weight: 68.9467 kg

DRUGS (2)
  1. DOCETAXEL     30MG/M2     AVENTIS [Suspect]
     Indication: LUNG NEOPLASM MALIGNANT
     Dosage: DOCETAXEL   30MG/M2   INTRAVENOU
     Route: 042
     Dates: start: 20040308, end: 20040419
  2. TRAZEDONE [Concomitant]

REACTIONS (1)
  - DISEASE PROGRESSION [None]
